FAERS Safety Report 12438602 (Version 2)
Quarter: 2016Q2

REPORT INFORMATION
  Report Type: Spontaneous
  Country: AU (occurrence: AU)
  Receive Date: 20160606
  Receipt Date: 20160615
  Transmission Date: 20160815
  Serious: Yes (Other)
  Sender: FDA-Public Use
  Company Number: AU-ABBVIE-16P-008-1642359-00

PATIENT
  Age: 70 Year
  Sex: Male

DRUGS (1)
  1. DUODOPA [Suspect]
     Active Substance: CARBIDOPA\LEVODOPA
     Indication: PRODUCT USED FOR UNKNOWN INDICATION
     Route: 050

REACTIONS (5)
  - Subcutaneous emphysema [Recovering/Resolving]
  - Pneumoperitoneum [Recovering/Resolving]
  - Agitation [Recovering/Resolving]
  - Abdominal pain [Recovered/Resolved with Sequelae]
  - Pneumonia aspiration [Recovered/Resolved]

NARRATIVE: CASE EVENT DATE: 20160519
